FAERS Safety Report 5441912-X (Version None)
Quarter: 2007Q3

REPORT INFORMATION
  Report Type: 
  Country: None (occurrence: None)
  Receive Date: 20070904
  Receipt Date: 20070824
  Transmission Date: 20080115
  Serious: Yes (Hospitalization)
  Sender: FDA-Public Use
  Company Number: JP-ELI_LILLY_AND_COMPANY-JP200708003279

PATIENT
  Age: 74 Year
  Sex: Male
  Weight: 56 kg

DRUGS (5)
  1. PEMETREXED [Suspect]
     Indication: PLEURAL MESOTHELIOMA MALIGNANT
     Dosage: 500 MG/M2, OTHER
     Route: 042
     Dates: start: 20070704, end: 20070726
  2. PANVITAN [Concomitant]
     Dosage: 0.5 MG, DAILY (1/D)
     Route: 048
     Dates: start: 20070530, end: 20070822
  3. METHYCOBAL [Concomitant]
     Dosage: 1 MG/M2, UNKNOWN
     Route: 030
     Dates: start: 20070601
  4. MAGNESIUM OXIDE [Concomitant]
     Indication: PROPHYLAXIS
     Dosage: 1.5 G, UNKNOWN
     Route: 048
  5. CISPLATIN [Suspect]
     Indication: PLEURAL MESOTHELIOMA
     Dosage: 60 MG/M2, OTHER
     Route: 042
     Dates: start: 20070704, end: 20070726

REACTIONS (2)
  - C-REACTIVE PROTEIN INCREASED [None]
  - PYREXIA [None]
